FAERS Safety Report 10994075 (Version 2)
Quarter: 2015Q2

REPORT INFORMATION
  Report Type: Spontaneous
  Country: BR (occurrence: BR)
  Receive Date: 20150407
  Receipt Date: 20150409
  Transmission Date: 20150821
  Serious: Yes (Hospitalization, Other)
  Sender: FDA-Public Use
  Company Number: BR-PFIZER INC-2015113569

PATIENT
  Age: 76 Year
  Sex: Male
  Weight: 98 kg

DRUGS (1)
  1. XALATAN [Suspect]
     Active Substance: LATANOPROST
     Indication: INTRAOCULAR PRESSURE INCREASED
     Dosage: UNK
     Route: 047

REACTIONS (5)
  - Suicide attempt [Recovered/Resolved]
  - Intentional self-injury [Recovered/Resolved]
  - Depression [Recovering/Resolving]
  - Vertebral lesion [Unknown]
  - Bedridden [Recovering/Resolving]

NARRATIVE: CASE EVENT DATE: 201411
